FAERS Safety Report 13336143 (Version 6)
Quarter: 2020Q3

REPORT INFORMATION
  Report Type: Report from Study
  Country: US (occurrence: US)
  Receive Date: 20170314
  Receipt Date: 20200702
  Transmission Date: 20201102
  Serious: Yes (Hospitalization)
  Sender: FDA-Public Use
  Company Number: US-ACTELION-A-NJ2017-150752

PATIENT
  Age: 51 Year
  Sex: Female

DRUGS (1)
  1. OPSUMIT [Suspect]
     Active Substance: MACITENTAN
     Indication: PULMONARY ARTERIAL HYPERTENSION
     Dosage: UNK
     Route: 048
     Dates: start: 20160113

REACTIONS (21)
  - Pharyngeal perforation [Recovered/Resolved]
  - Upper gastrointestinal haemorrhage [Recovered/Resolved]
  - Chest pain [Recovered/Resolved]
  - Tendon disorder [Unknown]
  - Pulmonary hypertension [Unknown]
  - Rectal haemorrhage [Recovered/Resolved]
  - Colitis [Recovered/Resolved]
  - Hepatic cirrhosis [Unknown]
  - Respiratory failure [Unknown]
  - Pneumothorax [Unknown]
  - Anastomotic ulcer [Recovered/Resolved]
  - Gastric ulcer [Recovered/Resolved]
  - Hypoxia [Unknown]
  - Sleep apnoea syndrome [Unknown]
  - Ankle impingement [Unknown]
  - Oesophagogastroduodenoscopy [Unknown]
  - Gastric bypass [Recovered/Resolved]
  - Syncope [Recovered/Resolved]
  - Pain in extremity [Unknown]
  - Foot deformity [Unknown]
  - Tendonitis [Unknown]

NARRATIVE: CASE EVENT DATE: 20160404
